FAERS Safety Report 21286705 (Version 1)
Quarter: 2022Q3

REPORT INFORMATION
  Report Type: Report from Study
  Country: BE (occurrence: BE)
  Receive Date: 20220902
  Receipt Date: 20220902
  Transmission Date: 20221027
  Serious: Yes (Life-Threatening)
  Sender: FDA-Public Use
  Company Number: BE-BRISTOL-MYERS SQUIBB COMPANY-2022-028557

PATIENT
  Age: 77 Year
  Sex: Male

DRUGS (4)
  1. OPDIVO [Suspect]
     Active Substance: NIVOLUMAB
     Indication: Metastatic malignant melanoma
     Route: 065
     Dates: start: 20220321
  2. OPDIVO [Suspect]
     Active Substance: NIVOLUMAB
     Route: 042
     Dates: start: 20220411, end: 20220523
  3. YERVOY [Suspect]
     Active Substance: IPILIMUMAB
     Indication: Metastatic malignant melanoma
     Route: 065
     Dates: start: 20220321
  4. YERVOY [Suspect]
     Active Substance: IPILIMUMAB
     Route: 042
     Dates: start: 20220411, end: 20220523

REACTIONS (5)
  - Fatigue [Unknown]
  - Constipation [Unknown]
  - Rash [Unknown]
  - Urticaria [Unknown]
  - Diarrhoea [Unknown]

NARRATIVE: CASE EVENT DATE: 20220519
